FAERS Safety Report 7996063 (Version 4)
Quarter: 2020Q3

REPORT INFORMATION
  Report Type: Report from Study
  Country: CA (occurrence: CA)
  Receive Date: 20110617
  Receipt Date: 20110726
  Transmission Date: 20201105
  Serious: Yes (Other)
  Sender: FDA-Public Use
  Company Number: CA-ROCHE-781273

PATIENT
  Age: 49 Year
  Sex: Female
  Weight: 64 kg

DRUGS (11)
  1. RITONAVIR. [Suspect]
     Active Substance: RITONAVIR
     Dosage: LAST DOSE PRIOR TO SAE: 12 MAY 2011.
     Route: 048
     Dates: start: 20101126
  2. DANOPREVIR. [Suspect]
     Active Substance: DANOPREVIR
     Dosage: LAST DOSE PRIOR TO SAE: 12 MAY 2011.
     Route: 048
     Dates: start: 20101126
  3. .ALPHA.?TOCOPHEROL\DOCONEXENT\ICOSAPENT [Concomitant]
     Dosage: DRUG: OMEGA 3.
     Dates: start: 1995
  4. PEGINTERFERON ALFA?2A. [Suspect]
     Active Substance: PEGINTERFERON ALFA-2A
     Dosage: LAST DOSE PRIOR TO SAE: 12 MAY 2011.
     Route: 058
     Dates: start: 20101126
  5. IBUPROFEN. [Concomitant]
     Active Substance: IBUPROFEN
     Dosage: TDD: PRN
  6. MAXALT [Concomitant]
     Active Substance: RIZATRIPTAN BENZOATE
     Dosage: TDD: PRN
  7. RIBAVIRIN. [Suspect]
     Active Substance: RIBAVIRIN
     Dosage: LAST DOSE PRIOR TO SAE: 12 MAY 2011.
     Route: 048
     Dates: start: 20101126
  8. VITAMIN E [Concomitant]
     Active Substance: .ALPHA.-TOCOPHEROL
     Dates: start: 1995
  9. ASCORBIC ACID. [Concomitant]
     Active Substance: ASCORBIC ACID
     Dates: start: 1995
  10. CALCIUM CARBONATE\MAGNESIUM CARBONATE [Concomitant]
     Active Substance: CALCIUM CARBONATE\MAGNESIUM CARBONATE
     Dates: start: 1995
  11. ALBUTEROL. [Concomitant]
     Active Substance: ALBUTEROL
     Dosage: TDD: PRN.

REACTIONS (1)
  - Sarcoidosis [Recovered/Resolved]

NARRATIVE: CASE EVENT DATE: 20110524
